FAERS Safety Report 9795022 (Version 1)
Quarter: 2014Q1

REPORT INFORMATION
  Report Type: Spontaneous
  Country: IN (occurrence: IN)
  Receive Date: 20140102
  Receipt Date: 20140102
  Transmission Date: 20141002
  Serious: Yes (Other)
  Sender: FDA-Public Use
  Company Number: IN-009507513-1312IND012603

PATIENT
  Sex: 0

DRUGS (2)
  1. CASPOFUNGIN ACETATE [Suspect]
     Indication: PYREXIA
  2. CASPOFUNGIN ACETATE [Suspect]
     Indication: ABDOMINAL SEPSIS

REACTIONS (4)
  - Renal failure [Unknown]
  - Fungal sepsis [Unknown]
  - Surgery [Unknown]
  - Trichosporon infection [Unknown]
